FAERS Safety Report 7984238-2 (Version None)
Quarter: 2011Q4

REPORT INFORMATION
  Report Type: 
  Country: None (occurrence: None)
  Receive Date: 20111214
  Receipt Date: 20111206
  Transmission Date: 20120403
  Serious: Yes (Other)
  Sender: FDA-Public Use
  Company Number: AUR-APL-2011-06079

PATIENT
  Sex: 0

DRUGS (1)
  1. ZOLPIDEM [Suspect]
     Indication: PRODUCT USED FOR UNKNOWN INDICATION
     Dosage: (10 MG),

REACTIONS (5)
  - WEIGHT DECREASED [None]
  - PRODUCT SUBSTITUTION ISSUE [None]
  - WRONG TECHNIQUE IN DRUG USAGE PROCESS [None]
  - AMNESIA [None]
  - DYSCALCULIA [None]
